FAERS Safety Report 21546287 (Version 2)
Quarter: 2023Q1

REPORT INFORMATION
  Report Type: Spontaneous
  Country: JP (occurrence: JP)
  Receive Date: 20221103
  Receipt Date: 20230131
  Transmission Date: 20230418
  Serious: Yes (Hospitalization, Other)
  Sender: FDA-Public Use
  Company Number: JP-ONO-2022JP029671

PATIENT
  Age: 67 Year
  Sex: Female

DRUGS (1)
  1. OPDIVO [Suspect]
     Active Substance: NIVOLUMAB
     Indication: Malignant melanoma
     Dosage: 480 MG, Q4W
     Route: 041
     Dates: start: 20211208

REACTIONS (2)
  - Cardiac arrest [Unknown]
  - Myocarditis [Unknown]

NARRATIVE: CASE EVENT DATE: 20220127
